FAERS Safety Report 20669226 (Version 2)
Quarter: 2022Q2

REPORT INFORMATION
  Report Type: Spontaneous
  Country: US (occurrence: US)
  Receive Date: 20220404
  Receipt Date: 20220408
  Transmission Date: 20220721
  Serious: No
  Sender: FDA-Public Use
  Company Number: US-BEH-2022143525

PATIENT
  Sex: Female

DRUGS (14)
  1. HIZENTRA [Suspect]
     Active Substance: HUMAN IMMUNOGLOBULIN G
     Indication: Bronchiectasis
     Dosage: 10 GRAM, QW
     Route: 058
     Dates: start: 20210119
  2. HIZENTRA [Suspect]
     Active Substance: HUMAN IMMUNOGLOBULIN G
     Indication: Asthma
  3. ADVAIR HFA [Concomitant]
     Active Substance: FLUTICASONE PROPIONATE\SALMETEROL XINAFOATE
  4. CAYSTON [Concomitant]
     Active Substance: AZTREONAM
  5. PREVACID [Concomitant]
     Active Substance: LANSOPRAZOLE
  6. PULMOZYME [Concomitant]
     Active Substance: DORNASE ALFA
  7. QVAR [Concomitant]
     Active Substance: BECLOMETHASONE DIPROPIONATE
  8. SINGULAIR [Concomitant]
     Active Substance: MONTELUKAST SODIUM
  9. VIVAGLOBIN [Concomitant]
     Active Substance: HUMAN IMMUNOGLOBULIN G
  10. ZYRTEC [Concomitant]
     Active Substance: CETIRIZINE HYDROCHLORIDE
  11. TOBI [Concomitant]
     Active Substance: TOBRAMYCIN
  12. PROAIR HFA [Concomitant]
     Active Substance: ALBUTEROL SULFATE
  13. DUPILUMAB [Concomitant]
     Active Substance: DUPILUMAB
  14. CALCIUM MAGNESIUM [CALCIUM;MAGNESIUM] [Concomitant]

REACTIONS (5)
  - Abdominal pain upper [Not Recovered/Not Resolved]
  - No adverse event [Unknown]
  - Off label use [Unknown]
  - Arthralgia [Unknown]
  - Myalgia [Unknown]
